FAERS Safety Report 7271824-0 (Version None)
Quarter: 2011Q1

REPORT INFORMATION
  Report Type: 
  Country: None (occurrence: None)
  Receive Date: 20110131
  Receipt Date: 20110131
  Transmission Date: 20110831
  Serious: Yes (Hospitalization, Other)
  Sender: FDA-Public Use
  Company Number: None

PATIENT
  Age: 20 Year
  Sex: Female
  Weight: 99.7913 kg

DRUGS (6)
  1. GIANVI 3 MG/0.02MG TEVA PHARMACEUTICALS USA [Suspect]
     Indication: DYSMENORRHOEA
     Dosage: 1 PER DAY PO
     Route: 048
     Dates: start: 20100702
  2. GIANVI 3 MG/0.02MG TEVA PHARMACEUTICALS USA [Suspect]
     Indication: MENSTRUATION IRREGULAR
     Dosage: 1 PER DAY PO
     Route: 048
     Dates: start: 20100702
  3. YAZ [Suspect]
     Indication: DYSMENORRHOEA
     Dosage: 1 PER DAY PO
     Route: 048
     Dates: start: 20100702, end: 20101117
  4. YAZ [Suspect]
     Indication: MENSTRUATION IRREGULAR
     Dosage: 1 PER DAY PO
     Route: 048
     Dates: start: 20100702, end: 20101117
  5. YAZ [Suspect]
     Indication: DYSMENORRHOEA
     Dosage: 1 PER DAY PO
     Route: 048
     Dates: start: 20070116, end: 20100702
  6. YAZ [Suspect]
     Indication: MENSTRUATION IRREGULAR
     Dosage: 1 PER DAY PO
     Route: 048
     Dates: start: 20070116, end: 20100702

REACTIONS (22)
  - ARTHRALGIA [None]
  - INSOMNIA [None]
  - GAIT DISTURBANCE [None]
  - DYSSTASIA [None]
  - DIARRHOEA [None]
  - NAUSEA [None]
  - DRY MOUTH [None]
  - DRY SKIN [None]
  - PRODUCT SUBSTITUTION ISSUE [None]
  - NECK PAIN [None]
  - ABDOMINAL DISTENSION [None]
  - THIRST [None]
  - DIZZINESS [None]
  - HEADACHE [None]
  - GASTROOESOPHAGEAL REFLUX DISEASE [None]
  - CLUMSINESS [None]
  - DYSPHEMIA [None]
  - PERIPHERAL COLDNESS [None]
  - ABDOMINAL PAIN [None]
  - HYPERSENSITIVITY [None]
  - BLOOD CHOLESTEROL INCREASED [None]
  - HYPOTHYROIDISM [None]
